FAERS Safety Report 17580068 (Version 1)
Quarter: 2020Q1

REPORT INFORMATION
  Report Type: Spontaneous
  Country: US (occurrence: US)
  Receive Date: 20200324
  Receipt Date: 20200324
  Transmission Date: 20200409
  Serious: Yes (Other)
  Sender: FDA-Public Use
  Company Number: None

PATIENT
  Age: 57 Year
  Sex: Female
  Weight: 81 kg

DRUGS (8)
  1. MULTIVITAMIN [Concomitant]
     Active Substance: VITAMINS
  2. FLUTICAZONE NASAL SPRAY [Concomitant]
  3. ALBUTEROL. [Concomitant]
     Active Substance: ALBUTEROL
  4. PULMICORT FLEXHALER [Suspect]
     Active Substance: BUDESONIDE
     Indication: ASTHMA
     Dosage: ?          QUANTITY:1 PUFF(S);?
     Route: 055
     Dates: start: 20180211, end: 20180303
  5. ASMANEX [Concomitant]
     Active Substance: MOMETASONE FUROATE
  6. MONTELUKAST [Concomitant]
     Active Substance: MONTELUKAST SODIUM
  7. AZELASTINE NASAL SPRAY [Concomitant]
     Active Substance: AZELASTINE
  8. CALCIUM [Concomitant]
     Active Substance: CALCIUM

REACTIONS (3)
  - Dyspepsia [None]
  - Gastrooesophageal reflux disease [None]
  - Abdominal pain upper [None]

NARRATIVE: CASE EVENT DATE: 20200212
